FAERS Safety Report 25803627 (Version 1)
Quarter: 2025Q3

REPORT INFORMATION
  Report Type: Spontaneous
  Country: CN (occurrence: CN)
  Receive Date: 20250915
  Receipt Date: 20250915
  Transmission Date: 20251021
  Serious: Yes (Hospitalization)
  Sender: ALCON
  Company Number: CN-ALCON LABORATORIES-ALC2025CN004676

PATIENT
  Age: 13 Year
  Sex: Male
  Weight: 35 kg

DRUGS (1)
  1. FLUORESCEIN SODIUM [Suspect]
     Active Substance: FLUORESCEIN SODIUM
     Indication: Imaging procedure
     Route: 042
     Dates: start: 20250901, end: 20250901

REACTIONS (4)
  - Nausea [Recovering/Resolving]
  - Rash [Recovering/Resolving]
  - Eyelid oedema [Recovering/Resolving]
  - Abdominal pain [Recovering/Resolving]

NARRATIVE: CASE EVENT DATE: 20250901
